FAERS Safety Report 9111532 (Version 2)
Quarter: 2014Q1

REPORT INFORMATION
  Report Type: Spontaneous
  Country: US (occurrence: US)
  Receive Date: 20130219
  Receipt Date: 20140213
  Transmission Date: 20141002
  Serious: No
  Sender: FDA-Public Use
  Company Number: US-BRISTOL-MYERS SQUIBB COMPANY-17224676

PATIENT
  Age: 57 Year
  Sex: Female

DRUGS (5)
  1. ABATACEPT SUBQ INJECTION 125MG/ML [Suspect]
     Dosage: LAST INJECTION:  14DEC2012
     Route: 058
  2. ENBREL [Suspect]
  3. FOLIC ACID [Concomitant]
  4. CALCIUM + VITAMIN D [Concomitant]
  5. METHOTREXATE TABS [Concomitant]

REACTIONS (4)
  - Musculoskeletal stiffness [Unknown]
  - Somnolence [Unknown]
  - Hyperaesthesia [Unknown]
  - Fatigue [Unknown]
